FAERS Safety Report 5549525-6 (Version None)
Quarter: 2007Q4

REPORT INFORMATION
  Report Type: 
  Country: None (occurrence: None)
  Receive Date: 20071212
  Receipt Date: 20071207
  Transmission Date: 20080405
  Serious: Yes (Other)
  Sender: FDA-Public Use
  Company Number: CN-JNJFOC-20071007813

PATIENT
  Age: 8 Year
  Sex: Female
  Weight: 22 kg

DRUGS (2)
  1. CHILDREN'S MOTRIN [Suspect]
  2. CHILDREN'S MOTRIN [Suspect]
     Indication: PYREXIA

REACTIONS (3)
  - DRUG INEFFECTIVE [None]
  - PHARMACEUTICAL PRODUCT COUNTERFEIT [None]
  - PYREXIA [None]
